FAERS Safety Report 10172917 (Version 1)
Quarter: 2014Q2

REPORT INFORMATION
  Report Type: Spontaneous
  Country: US (occurrence: None)
  Receive Date: 20140514
  Receipt Date: 20140514
  Transmission Date: 20141212
  Serious: Yes (Disabling)
  Sender: FDA-Public Use
  Company Number: None

PATIENT
  Age: 37 Year
  Sex: Female
  Weight: 48.99 kg

DRUGS (1)
  1. LEVAQUIN [Suspect]
     Indication: SINUSITIS
     Dosage: 2 PILLS?QD
     Dates: start: 20080101, end: 20080125

REACTIONS (4)
  - Pain [None]
  - Arthralgia [None]
  - Mobility decreased [None]
  - Decreased activity [None]
